FAERS Safety Report 4558495-9 (Version None)
Quarter: 2005Q1

REPORT INFORMATION
  Report Type: 
  Country: None (occurrence: None)
  Receive Date: 20050121
  Receipt Date: 20041119
  Transmission Date: 20050727
  Serious: Yes (Death)
  Sender: FDA-Public Use
  Company Number: US-MERCK-0411USA03295

PATIENT
  Age: 79 Year
  Sex: Female
  Weight: 45 kg

DRUGS (4)
  1. VIOXX [Suspect]
     Route: 048
     Dates: end: 20040821
  2. CORTICOSTEROIDS (UNSPECIFIED) [Concomitant]
     Route: 065
     Dates: start: 20030801
  3. TYLOX [Concomitant]
     Route: 065
     Dates: start: 20040801
  4. ULTRACET [Concomitant]
     Route: 065
     Dates: start: 20040801

REACTIONS (2)
  - GASTROINTESTINAL HAEMORRHAGE [None]
  - SPINAL COLUMN STENOSIS [None]
